FAERS Safety Report 4937221-5 (Version None)
Quarter: 2006Q1

REPORT INFORMATION
  Report Type: 
  Country: None (occurrence: None)
  Receive Date: 20060307
  Receipt Date: 20060307
  Transmission Date: 20060701
  Serious: Yes (Hospitalization)
  Sender: FDA-Public Use
  Company Number: None

PATIENT
  Age: 66 Year
  Sex: Male

DRUGS (2)
  1. ISOSORBIDE [Suspect]
     Indication: CORONARY ARTERY DISEASE
     Dosage: 20 MG TID PO [SEVERAL YEARS]
     Route: 048
  2. TERAZOSIN [Suspect]
     Indication: HYPERTENSION
     Dosage: 5 MG HS PO [SEVERAL YEARS)
     Route: 048

REACTIONS (6)
  - DIZZINESS [None]
  - ISCHAEMIA [None]
  - LABORATORY TEST ABNORMAL [None]
  - LACUNAR INFARCTION [None]
  - ORTHOSTATIC HYPOTENSION [None]
  - SYNCOPE [None]
